FAERS Safety Report 23162887 (Version 1)
Quarter: 2023Q4

REPORT INFORMATION
  Report Type: Spontaneous
  Country: US (occurrence: None)
  Receive Date: 20231109
  Receipt Date: 20231109
  Transmission Date: 20240110
  Serious: No
  Sender: FDA-Public Use
  Company Number: US-ROCHE-3259887

PATIENT
  Sex: Female

DRUGS (1)
  1. COTELLIC [Suspect]
     Active Substance: COBIMETINIB
     Indication: Histiocytic sarcoma
     Dosage: 2 TABLETS BY MOUTH DAILY FOR 21 DAYS, WITHHOLD FOR 7 DAYS THEN REPEAT CYCLE
     Route: 048
     Dates: start: 202210

REACTIONS (1)
  - Constipation [Not Recovered/Not Resolved]
